FAERS Safety Report 9445240 (Version 1)
Quarter: 2013Q3

REPORT INFORMATION
  Report Type: Spontaneous
  Country: FR (occurrence: FR)
  Receive Date: 20130807
  Receipt Date: 20130807
  Transmission Date: 20140515
  Serious: Yes (Congenital Anomaly)
  Sender: FDA-Public Use
  Company Number: FR-GLAXOSMITHKLINE-B0912447A

PATIENT
  Age: 0 None
  Sex: Male

DRUGS (1)
  1. LAMICTAL [Suspect]
     Indication: EPILEPSY
     Dosage: 150MG PER DAY
     Route: 064

REACTIONS (3)
  - Limb reduction defect [Recovered/Resolved with Sequelae]
  - Congenital intestinal obstruction [Recovered/Resolved]
  - Foetal exposure during pregnancy [Unknown]
